FAERS Safety Report 13089646 (Version 1)
Quarter: 2017Q1

REPORT INFORMATION
  Report Type: Spontaneous
  Country: FR (occurrence: FR)
  Receive Date: 20170105
  Receipt Date: 20170105
  Transmission Date: 20170428
  Serious: Yes (Congenital Anomaly)
  Sender: FDA-Public Use
  Company Number: FR-SA-2016SA238509

PATIENT
  Sex: Female

DRUGS (1)
  1. LOVENOX [Suspect]
     Active Substance: ENOXAPARIN SODIUM
     Route: 064
     Dates: start: 201606, end: 201606

REACTIONS (3)
  - Foetal exposure during pregnancy [Unknown]
  - Dysmorphism [Unknown]
  - Multiple epiphyseal dysplasia [Unknown]

NARRATIVE: CASE EVENT DATE: 20160908
